FAERS Safety Report 9951410 (Version 1)
Quarter: 2014Q1

REPORT INFORMATION
  Report Type: Spontaneous
  Country: JP (occurrence: JP)
  Receive Date: 20140304
  Receipt Date: 20140304
  Transmission Date: 20141002
  Serious: Yes (Hospitalization)
  Sender: FDA-Public Use
  Company Number: JP-SA-2014SA022183

PATIENT
  Age: 80 Year
  Sex: Male

DRUGS (5)
  1. GLYCERIN [Suspect]
     Indication: REDUCTION OF INCREASED INTRACRANIAL PRESSURE
     Route: 065
  2. FUROSEMIDE [Suspect]
     Indication: REDUCTION OF INCREASED INTRACRANIAL PRESSURE
     Route: 065
  3. DIAZEPAM [Concomitant]
     Indication: CONVULSION
     Route: 042
  4. ANTIEPILEPTICS [Concomitant]
     Indication: REDUCTION OF INCREASED INTRACRANIAL PRESSURE
  5. HYPNOTICS AND SEDATIVES [Concomitant]
     Indication: REDUCTION OF INCREASED INTRACRANIAL PRESSURE

REACTIONS (8)
  - Urine output increased [Unknown]
  - Off label use [Unknown]
  - Blood pressure decreased [Unknown]
  - Intestinal ischaemia [Unknown]
  - Abdominal distension [Unknown]
  - Intestinal dilatation [Unknown]
  - Gastrointestinal necrosis [Unknown]
  - Intestinal ischaemia [Unknown]
